FAERS Safety Report 6215540-2 (Version None)
Quarter: 2009Q2

REPORT INFORMATION
  Report Type: 
  Country: None (occurrence: None)
  Receive Date: 20090605
  Receipt Date: 20071008
  Transmission Date: 20091009
  Serious: Yes (Other)
  Sender: FDA-Public Use
  Company Number: US-ASTRAZENECA-2007UW18757

PATIENT
  Age: 16803 Day
  Sex: Male
  Weight: 80.3 kg

DRUGS (38)
  1. SEROQUEL [Suspect]
     Route: 048
     Dates: end: 20010101
  2. SEROQUEL [Suspect]
     Dosage: 25 MG-200 MG
     Route: 048
     Dates: start: 20001218, end: 20020208
  3. HEPARIN [Concomitant]
     Dosage: 5000 UNITS INFUSION, 25000 UNITS IN 0.45% NACL 500 ML
     Route: 042
     Dates: start: 20000107
  4. COCAINE [Concomitant]
     Dosage: TWO TO THREE TIMES A MONTH
     Route: 042
     Dates: start: 20000120
  5. MIDAZOLAM HCL [Concomitant]
     Dosage: 2 MG/2 ML
     Dates: start: 20000407
  6. NICOTINE [Concomitant]
     Dosage: 7 MG, 14 MG, 21 MG
     Route: 062
     Dates: start: 20000413
  7. GLYBURIDE [Concomitant]
     Dosage: 1.25 MG-10 MG
     Route: 048
     Dates: start: 20000508
  8. BARBITURATES [Concomitant]
     Dates: start: 20000918
  9. PHENCYCLIDINE [Concomitant]
     Dates: start: 20000918
  10. METHADONE HCL [Concomitant]
     Route: 048
     Dates: start: 20000918
  11. AMPHETAMINE SULFATE [Concomitant]
     Dates: start: 20000918
  12. DIAZEPAM [Concomitant]
     Indication: CONVULSION
     Route: 048
     Dates: start: 20000918
  13. HALDOL [Concomitant]
     Indication: AGITATION
     Dates: start: 20000920
  14. ATIVAN [Concomitant]
     Dosage: 2 MG-5 MG
     Route: 042
     Dates: start: 20000921
  15. INSULIN HUMAN REGULAR [Concomitant]
     Dosage: 100 UNITS/M
     Dates: start: 20000922
  16. REMERON [Concomitant]
     Indication: SLEEP DISORDER
     Dosage: 15 MG-60 MG
     Dates: start: 20001024
  17. EFFEXOR XR [Concomitant]
     Dosage: 75 MG-225 MG
     Dates: start: 20001218
  18. PRANDIN [Concomitant]
     Route: 048
     Dates: start: 20010403
  19. HUMULIN 70/30 [Concomitant]
     Dosage: 15 UNITS, 50 UNITS
     Dates: start: 20010620
  20. BUSPIRONE HCL [Concomitant]
     Dates: start: 20010621
  21. ASPIRIN [Concomitant]
     Dosage: 81 MG, 300 MG, 325 MG
     Route: 048
     Dates: start: 20010717
  22. ZESTRIL [Concomitant]
     Dosage: 10 MG-20 MG
     Dates: start: 20010820
  23. ZINC PYRITHIONE [Concomitant]
     Dates: start: 20011130
  24. PROTONIX [Concomitant]
     Dosage: 20 MG, 40 MG DAILY
     Dates: start: 20011214
  25. LANTUS [Concomitant]
     Dosage: 15 UNITS, 30 UNITS, 40 UNITS, 50 UNITS, 70 UNITS EVERY NIGHT
     Dates: start: 20020129
  26. FLEXERIL [Concomitant]
     Route: 048
     Dates: start: 20020920
  27. NOVOLIN R [Concomitant]
     Dosage: 100 UNITS/ML THREE TO FOUR TIMES A DAY
     Dates: start: 20040130
  28. DARVON [Concomitant]
     Indication: BACK PAIN
     Dates: start: 20060719
  29. LEVEMIR [Concomitant]
     Dosage: 50 UNITS, 70 UNITS, 100 UNITS
     Route: 058
     Dates: start: 20070117
  30. ALPRAZOLAM [Concomitant]
     Dates: start: 20070406
  31. METOPROLOL TARTRATE [Concomitant]
     Dates: start: 20070406
  32. TRAMADOL HCL [Concomitant]
     Indication: PAIN
     Dates: start: 20070407
  33. ZOLPIDEM TARTRATE [Concomitant]
     Route: 048
     Dates: start: 20070407
  34. OLANZAPINE [Concomitant]
     Route: 048
     Dates: start: 20070407
  35. DOCUSATE [Concomitant]
     Route: 048
     Dates: start: 20070407
  36. ATORVASTATIN CALCIUM [Concomitant]
     Route: 048
     Dates: start: 20070407
  37. INSULIN ASPART [Concomitant]
     Dosage: 2 UNITS -16 UNITS
     Dates: start: 20070408
  38. ATENOLOL [Concomitant]
     Dosage: 25 MG, 50 MG
     Route: 048
     Dates: start: 20070410

REACTIONS (5)
  - DIABETES MELLITUS [None]
  - DIABETES MELLITUS INADEQUATE CONTROL [None]
  - DIABETIC NEPHROPATHY [None]
  - DIABETIC NEUROPATHY [None]
  - DIABETIC RETINOPATHY [None]
